FAERS Safety Report 7828491-4 (Version None)
Quarter: 2011Q4

REPORT INFORMATION
  Report Type: 
  Country: None (occurrence: None)
  Receive Date: 20111020
  Receipt Date: 20111014
  Transmission Date: 20120403
  Serious: Yes (Other)
  Sender: FDA-Public Use
  Company Number: US-ABBOTT-11P-163-0864209-00

PATIENT
  Sex: Male
  Weight: 136.2 kg

DRUGS (4)
  1. HUMIRA [Suspect]
     Indication: CROHN'S DISEASE
     Route: 058
     Dates: start: 20100401, end: 20100701
  2. IRON [Concomitant]
     Indication: ANAEMIA
     Dosage: SUPPLEMENT
  3. PREDNISONE [Concomitant]
     Indication: CROHN'S DISEASE
  4. IRON [Concomitant]
     Indication: CROHN'S DISEASE

REACTIONS (5)
  - INJECTION SITE HAEMATOMA [None]
  - CROHN'S DISEASE [None]
  - TREATMENT NONCOMPLIANCE [None]
  - INJECTION SITE PAIN [None]
  - ABDOMINAL ADHESIONS [None]
